FAERS Safety Report 23703704 (Version 1)
Quarter: 2024Q2

REPORT INFORMATION
  Report Type: Spontaneous
  Country: US (occurrence: US)
  Receive Date: 20240403
  Receipt Date: 20240403
  Transmission Date: 20240716
  Serious: No
  Sender: FDA-Public Use
  Company Number: US-ELI_LILLY_AND_COMPANY-US202403012211

PATIENT
  Age: 70 Year
  Sex: Female

DRUGS (4)
  1. MOUNJARO [Suspect]
     Active Substance: TIRZEPATIDE
     Indication: Lung disorder
     Dosage: 5 MG, UNKNOWN
     Route: 065
     Dates: start: 202312
  2. MOUNJARO [Suspect]
     Active Substance: TIRZEPATIDE
     Indication: Decreased appetite
  3. MOUNJARO [Suspect]
     Active Substance: TIRZEPATIDE
     Indication: Arthralgia
  4. BENZYL ALCOHOL [Concomitant]
     Active Substance: BENZYL ALCOHOL
     Indication: Product used for unknown indication

REACTIONS (2)
  - Headache [Unknown]
  - Product tampering [Unknown]

NARRATIVE: CASE EVENT DATE: 20231201
